FAERS Safety Report 6375851-7 (Version None)
Quarter: 2009Q3

REPORT INFORMATION
  Report Type: 
  Country: None (occurrence: None)
  Receive Date: 20090918
  Receipt Date: 20090907
  Transmission Date: 20100115
  Serious: Yes (Hospitalization)
  Sender: FDA-Public Use
  Company Number: 2009AL005907

PATIENT
  Age: 42 Year
  Sex: Female

DRUGS (2)
  1. DIAZEPAM [Suspect]
  2. ORLISTAT [Concomitant]

REACTIONS (5)
  - BLOOD UREA INCREASED [None]
  - DEPRESSION [None]
  - HYPOACUSIS [None]
  - OTITIS MEDIA [None]
  - OVERDOSE [None]
